FAERS Safety Report 6180244-1 (Version None)
Quarter: 2009Q2

REPORT INFORMATION
  Report Type: 
  Country: None (occurrence: None)
  Receive Date: 20090504
  Receipt Date: 20090422
  Transmission Date: 20091009
  Serious: Yes (Hospitalization)
  Sender: FDA-Public Use
  Company Number: 8045245

PATIENT
  Sex: Female
  Weight: 60.2 kg

DRUGS (18)
  1. KEPPRA [Suspect]
     Indication: CONVULSION
     Dosage: 500 MG 2/D
  2. COREG [Concomitant]
  3. CEFTAZIDIME [Concomitant]
  4. QUESTRAN [Concomitant]
  5. SANTYL [Concomitant]
  6. DUONEB [Concomitant]
  7. EPOGEN [Concomitant]
  8. DIFLUCAN [Concomitant]
  9. HEPARIN [Concomitant]
  10. PREVACID [Concomitant]
  11. LEVAQUIN [Concomitant]
  12. SYNTHROID [Concomitant]
  13. LISINOPRIL [Concomitant]
  14. MULTI-VITAMIN [Concomitant]
  15. NOVOLIN [Concomitant]
  16. ZINC [Concomitant]
  17. TYLENOL [Concomitant]
  18. NOVOLIN N [Concomitant]

REACTIONS (2)
  - OSTEOMYELITIS [None]
  - RENAL FAILURE [None]
